FAERS Safety Report 17109965 (Version 1)
Quarter: 2019Q4

REPORT INFORMATION
  Report Type: Spontaneous
  Country: GB (occurrence: GB)
  Receive Date: 20191204
  Receipt Date: 20191204
  Transmission Date: 20200122
  Serious: Yes (Other)
  Sender: FDA-Public Use
  Company Number: NVSC2019GB051009

PATIENT
  Sex: Female
  Weight: 2.23 kg

DRUGS (4)
  1. SALBUTAMOL [Suspect]
     Active Substance: ALBUTEROL
     Indication: FOETAL EXPOSURE DURING PREGNANCY
     Dosage: UNK
     Route: 064
  2. FLUOXETINE [Suspect]
     Active Substance: FLUOXETINE HYDROCHLORIDE
     Indication: FOETAL EXPOSURE DURING PREGNANCY
     Dosage: MATERNAL EXPOSURE DURING PREGNANCY:10 MG
     Route: 064
  3. FORMOTEROL [Suspect]
     Active Substance: FORMOTEROL
     Indication: FOETAL EXPOSURE DURING PREGNANCY
     Dosage: MATERNAL EXPOSURE DURING PREGNANCY:2 DF, QD(1 DF, 2X/DAY (BID))
     Route: 064
     Dates: start: 200510
  4. BUDESONIDE. [Suspect]
     Active Substance: BUDESONIDE
     Indication: FOETAL EXPOSURE DURING PREGNANCY
     Dosage: MATERNAL EXPOSURE DURING PREGNANCY: 2 DF, QD(1 DF, 2X/DAY (BID))
     Route: 064
     Dates: start: 200510

REACTIONS (3)
  - Sepsis [Unknown]
  - Maternal exposure during pregnancy [Unknown]
  - Low birth weight baby [Unknown]
